FAERS Safety Report 9263518 (Version 1)
Quarter: 2013Q2

REPORT INFORMATION
  Report Type: Spontaneous
  Country: US (occurrence: US)
  Receive Date: 20130430
  Receipt Date: 20130430
  Transmission Date: 20140414
  Serious: Yes (Other)
  Sender: FDA-Public Use
  Company Number: US-BAYER-2013-052106

PATIENT
  Age: 24 Year
  Sex: Female
  Weight: 75.74 kg

DRUGS (4)
  1. YAZ [Suspect]
  2. YASMIN [Suspect]
  3. TOPAMAX [Concomitant]
     Dosage: 50 MG, UNK
  4. VITAMINS [Concomitant]

REACTIONS (2)
  - Retinal haemorrhage [None]
  - Retinal vascular thrombosis [None]
